FAERS Safety Report 12383265 (Version 2)
Quarter: 2016Q3

REPORT INFORMATION
  Report Type: Report from Study
  Country: AU (occurrence: AU)
  Receive Date: 20160518
  Receipt Date: 20160712
  Transmission Date: 20161109
  Serious: Yes (Hospitalization, Other)
  Sender: FDA-Public Use
  Company Number: AU-ABBVIE-16K-008-1626214-00

PATIENT
  Sex: Female

DRUGS (1)
  1. HUMIRA [Suspect]
     Active Substance: ADALIMUMAB
     Indication: PSORIATIC ARTHROPATHY
     Route: 058
     Dates: end: 2016

REACTIONS (10)
  - Malaise [Unknown]
  - Diarrhoea [Unknown]
  - Liver function test increased [Unknown]
  - Vomiting [Unknown]
  - Sensory disturbance [Unknown]
  - Chest pain [Unknown]
  - Musculoskeletal pain [Unknown]
  - Gallbladder disorder [Unknown]
  - Nausea [Unknown]
  - Musculoskeletal chest pain [Unknown]
